FAERS Safety Report 5369303-0 (Version None)
Quarter: 2007Q2

REPORT INFORMATION
  Report Type: 
  Country: None (occurrence: None)
  Receive Date: 20070625
  Receipt Date: 20070216
  Transmission Date: 20071010
  Serious: No
  Sender: FDA-Public Use
  Company Number: US-ASTRAZENECA-2007UW03135

PATIENT
  Age: 74 Year
  Sex: Female
  Weight: 55.8 kg

DRUGS (3)
  1. CRESTOR [Suspect]
     Indication: BLOOD CHOLESTEROL INCREASED
     Route: 048
     Dates: start: 20070101
  2. DILTIAZEM [Concomitant]
  3. MULTIVITAMIN [Concomitant]

REACTIONS (1)
  - DRY THROAT [None]
